FAERS Safety Report 8078656-4 (Version None)
Quarter: 2012Q1

REPORT INFORMATION
  Report Type: 
  Country: None (occurrence: None)
  Receive Date: 20120124
  Receipt Date: 20120113
  Transmission Date: 20120608
  Serious: Yes (Life-Threatening, Hospitalization, Other)
  Sender: FDA-Public Use
  Company Number: AUR-APL-2009-00055

PATIENT
  Age: 29 Year
  Sex: Male

DRUGS (5)
  1. CETIRIZINE [Concomitant]
  2. IBUPROFEN TABLETS [Suspect]
     Indication: ABDOMINAL PAIN
     Dosage: 1200 MG (400 MG,3 IN 1 D),ORAL
     Route: 048
     Dates: start: 20090605, end: 20090609
  3. BECONASE [Concomitant]
  4. ASPIRIN [Suspect]
     Indication: ABDOMINAL PAIN
     Dosage: 900 MG (300 MG,3 IN 1 D), ORAL
     Route: 048
     Dates: start: 20090610, end: 20090612
  5. CITALOPRAM HYDROBROMIDE [Suspect]
     Indication: DEPRESSION
     Dosage: 20 MG (20 MG,1 IN 1 D),ORAL
     Route: 048
     Dates: start: 20090105, end: 20090616

REACTIONS (1)
  - GASTRIC ULCER PERFORATION [None]
